FAERS Safety Report 4319392-7 (Version None)
Quarter: 2004Q1

REPORT INFORMATION
  Report Type: 
  Country: None (occurrence: None)
  Receive Date: 20040316
  Receipt Date: 20040302
  Transmission Date: 20041129
  Serious: Yes (Death)
  Sender: FDA-Public Use
  Company Number: 2003-BP-06226PF

PATIENT
  Age: 75 Year
  Sex: Male

DRUGS (2)
  1. SPIRIVA [Suspect]
     Dosage: 18 MCG (18 MCG) IH
     Route: 055
  2. OXYGEN [Concomitant]

REACTIONS (2)
  - CARDIAC ARREST [None]
  - ILL-DEFINED DISORDER [None]
